FAERS Safety Report 8180394-4 (Version None)
Quarter: 2012Q1

REPORT INFORMATION
  Report Type: 
  Country: None (occurrence: None)
  Receive Date: 20120229
  Receipt Date: 20120217
  Transmission Date: 20120608
  Serious: Yes (Hospitalization)
  Sender: FDA-Public Use
  Company Number: 2012027368

PATIENT
  Age: 57 Year
  Sex: Male

DRUGS (8)
  1. DALTEPARIN SODIUM [Suspect]
     Indication: LUNG NEOPLASM MALIGNANT
     Dosage: 5000 IU, 1X/DAY, SUBCUTANEOUS
     Route: 058
     Dates: start: 20110725, end: 20111121
  2. ASPIRIN [Concomitant]
  3. FOLIC ACID [Concomitant]
  4. RAMIPRIL [Concomitant]
  5. ATORVASTATIN [Concomitant]
  6. ISOSORBIDE MONINITRATE (ISOSORBIDE MONONITRATE) [Concomitant]
  7. METOPROLOL TARTRATE [Concomitant]
  8. FLUOXETINE [Concomitant]

REACTIONS (3)
  - ABDOMINAL PAIN [None]
  - DEHYDRATION [None]
  - BILIARY COLIC [None]
